FAERS Safety Report 23426101 (Version 1)
Quarter: 2024Q1

REPORT INFORMATION
  Report Type: Spontaneous
  Country: US (occurrence: US)
  Receive Date: 20240122
  Receipt Date: 20240122
  Transmission Date: 20240409
  Serious: No
  Sender: FDA-Public Use
  Company Number: US-OPELLA-2024OHG000913

PATIENT

DRUGS (2)
  1. UNISOM SLEEPMELTS [Suspect]
     Active Substance: DIPHENHYDRAMINE HYDROCHLORIDE
     Indication: Rash
     Route: 065
  2. Elexacaftor-tezacaftor-ivacaftor (ETI) [Concomitant]
     Indication: Cystic fibrosis
     Route: 065

REACTIONS (2)
  - Off label use [Unknown]
  - No adverse event [Unknown]
